FAERS Safety Report 4751905-3 (Version None)
Quarter: 2005Q3

REPORT INFORMATION
  Report Type: 
  Country: None (occurrence: None)
  Receive Date: 20050822
  Receipt Date: 20050519
  Transmission Date: 20060218
  Serious: No
  Sender: FDA-Public Use
  Company Number: PHEH2005US05683

PATIENT
  Age: 33 Year
  Sex: Female

DRUGS (2)
  1. ZELNORM [Suspect]
     Indication: CONSTIPATION
     Dosage: 2 MG, BID, ORAL
     Route: 048
     Dates: start: 20050506
  2. PROZAC [Concomitant]

REACTIONS (2)
  - ABNORMAL DREAMS [None]
  - ANXIETY [None]
